FAERS Safety Report 7587488-2 (Version None)
Quarter: 2011Q3

REPORT INFORMATION
  Report Type: 
  Country: None (occurrence: None)
  Receive Date: 20110704
  Receipt Date: 20110629
  Transmission Date: 20111222
  Serious: Yes (Hospitalization)
  Sender: FDA-Public Use
  Company Number: US-ASTRAZENECA-2011SE17776

PATIENT
  Age: 13633 Day
  Sex: Female

DRUGS (11)
  1. BACTRIM [Concomitant]
     Dosage: 1 BID
     Dates: start: 20050608
  2. XANAX [Concomitant]
     Dosage: 1 MG TO 2 MG
     Dates: start: 20050428
  3. GEODON [Concomitant]
     Dates: start: 20030701
  4. XANAX [Concomitant]
     Route: 060
     Dates: start: 20030701
  5. XANAX [Concomitant]
     Dates: start: 20030701
  6. SEROQUEL [Suspect]
     Route: 048
     Dates: start: 20030701
  7. LAMICTAL [Concomitant]
     Dates: start: 20050428
  8. HYDROXYZ PAM [Concomitant]
     Dates: start: 20050616
  9. SEROQUEL [Suspect]
     Dosage: 25 MG TO 300 MG
     Route: 048
     Dates: start: 20050513
  10. HYDROXYZ PAM [Concomitant]
     Dates: start: 20030701
  11. PROPOX APAP [Concomitant]
     Dosage: 100 / 650
     Dates: start: 20050514

REACTIONS (2)
  - BRIEF PSYCHOTIC DISORDER WITH MARKED STRESSORS [None]
  - HYPERSENSITIVITY [None]
